FAERS Safety Report 8274420-1 (Version None)
Quarter: 2012Q2

REPORT INFORMATION
  Report Type: 
  Country: None (occurrence: None)
  Receive Date: 20120411
  Receipt Date: 20120404
  Transmission Date: 20120825
  Serious: No
  Sender: FDA-Public Use
  Company Number: US-PFIZER INC-2012014131

PATIENT
  Sex: Female

DRUGS (1)
  1. XALATAN [Suspect]
     Indication: OPEN ANGLE GLAUCOMA
     Dosage: 0.005 %, (1 GTT QHS OU)1 DROP IN EACH EYE DAILY
     Route: 047

REACTIONS (1)
  - PAIN [None]
